FAERS Safety Report 6485906-4 (Version None)
Quarter: 2009Q4

REPORT INFORMATION
  Report Type: 
  Country: None (occurrence: None)
  Receive Date: 20091204
  Receipt Date: 20091119
  Transmission Date: 20100525
  Serious: Yes (Other)
  Sender: FDA-Public Use
  Company Number: 2009SP037716

PATIENT
  Age: 22 Year
  Sex: Female
  Weight: 63.05 kg

DRUGS (1)
  1. IMPLANON [Suspect]
     Indication: CONTRACEPTION
     Dates: start: 20091029

REACTIONS (3)
  - LOSS OF CONSCIOUSNESS [None]
  - MIGRAINE [None]
  - VAGINAL HAEMORRHAGE [None]
